FAERS Safety Report 6108877-9 (Version None)
Quarter: 2009Q1

REPORT INFORMATION
  Report Type: 
  Country: None (occurrence: None)
  Receive Date: 20090310
  Receipt Date: 20090226
  Transmission Date: 20090719
  Serious: Yes (Other)
  Sender: FDA-Public Use
  Company Number: DE-JNJFOC-20090205344

PATIENT
  Age: 54 Year
  Sex: Male
  Weight: 102 kg

DRUGS (7)
  1. INFLIXIMAB [Suspect]
     Dosage: TOTAL OF 8 INFUSIONS
     Route: 042
  2. INFLIXIMAB [Suspect]
     Route: 042
  3. INFLIXIMAB [Suspect]
     Dosage: INCREASED TO 500 MG AFTER THIS INFUSION
     Route: 042
  4. INFLIXIMAB [Suspect]
     Indication: ANKYLOSING SPONDYLITIS
     Route: 042
  5. ARCOXIA [Concomitant]
     Indication: DRUG USE FOR UNKNOWN INDICATION
     Route: 048
  6. TARGIN [Concomitant]
     Indication: DRUG USE FOR UNKNOWN INDICATION
     Dosage: 20/10 MG
     Route: 048
  7. KINZAL [Concomitant]
     Dosage: 80/12.5

REACTIONS (7)
  - CHEST PAIN [None]
  - DYSPNOEA [None]
  - HYPERSENSITIVITY [None]
  - HYPOTENSION [None]
  - INFUSION RELATED REACTION [None]
  - PALPITATIONS [None]
  - RASH [None]
